FAERS Safety Report 9233275 (Version 1)
Quarter: 2013Q2

REPORT INFORMATION
  Report Type: Spontaneous
  Country: US (occurrence: US)
  Receive Date: 20130416
  Receipt Date: 20130416
  Transmission Date: 20140414
  Serious: No
  Sender: FDA-Public Use
  Company Number: US-BANPHARM-20130866

PATIENT
  Age: 45 Year
  Sex: Male
  Weight: 92.99 kg

DRUGS (5)
  1. ALEVE LIQUID GELS 220MG [Suspect]
     Indication: HEADACHE
     Route: 048
  2. BAYER 81 MG LOW DOSE ASPIRIN [Concomitant]
     Dosage: 1 DF, QD,
  3. LISINOPRIL [Concomitant]
  4. METFORMIN [Concomitant]
  5. PRESCRIPTION BOTTLE FROM WALGREENS LOW D [Concomitant]

REACTIONS (3)
  - Abdominal pain [Recovered/Resolved]
  - Abdominal discomfort [Recovered/Resolved]
  - Dyspepsia [Recovered/Resolved]
